FAERS Safety Report 7010683-8 (Version None)
Quarter: 2010Q3

REPORT INFORMATION
  Report Type: 
  Country: None (occurrence: None)
  Receive Date: 20100923
  Receipt Date: 20100920
  Transmission Date: 20110219
  Serious: Yes (Hospitalization)
  Sender: FDA-Public Use
  Company Number: US-GILEAD-2010-0031686

PATIENT
  Sex: Female

DRUGS (13)
  1. LETAIRIS [Suspect]
     Indication: PULMONARY ARTERIAL HYPERTENSION
     Route: 048
     Dates: start: 20100817
  2. PLAVIX [Concomitant]
  3. FUROSEMIDE [Concomitant]
  4. COREG [Concomitant]
  5. CLONIDINE [Concomitant]
  6. DIOVAN [Concomitant]
  7. LEXAPRO [Concomitant]
  8. LIPITOR [Concomitant]
  9. JANUVIA [Concomitant]
  10. METFORMIN [Concomitant]
  11. MINOXIDIL [Concomitant]
  12. SYNTHROID [Concomitant]
  13. ZANTAC [Concomitant]

REACTIONS (4)
  - ABDOMINAL DISTENSION [None]
  - DIARRHOEA [None]
  - DYSPNOEA [None]
  - PNEUMONIA [None]
